FAERS Safety Report 6093631-7 (Version None)
Quarter: 2009Q1

REPORT INFORMATION
  Report Type: 
  Country: None (occurrence: None)
  Receive Date: 20090226
  Receipt Date: 20090223
  Transmission Date: 20090719
  Serious: Yes (Death)
  Sender: FDA-Public Use
  Company Number: PHEH2009US01990

PATIENT

DRUGS (1)
  1. GLEEVEC [Suspect]
     Indication: ACUTE LEUKAEMIA
     Dosage: 400 MG, QD
     Dates: start: 20090201

REACTIONS (1)
  - DEATH [None]
